FAERS Safety Report 7483216-X (Version None)
Quarter: 2011Q2

REPORT INFORMATION
  Report Type: 
  Country: None (occurrence: None)
  Receive Date: 20110516
  Receipt Date: 20100601
  Transmission Date: 20111010
  Serious: No
  Sender: FDA-Public Use
  Company Number: US-ALLERGAN-1007132US

PATIENT
  Age: 70 Year
  Sex: Female

DRUGS (2)
  1. ZYMAR [Suspect]
     Indication: CATARACT OPERATION
     Dosage: 1 GTT, QID
     Dates: start: 20100524
  2. PRED FORTE [Suspect]
     Indication: CATARACT OPERATION
     Dosage: 1 GTT, QID
     Dates: start: 20100524

REACTIONS (3)
  - DECREASED APPETITE [None]
  - MALAISE [None]
  - HEADACHE [None]
